FAERS Safety Report 25626709 (Version 1)
Quarter: 2025Q3

REPORT INFORMATION
  Report Type: Spontaneous
  Country: EU (occurrence: EU)
  Receive Date: 20250731
  Receipt Date: 20250731
  Transmission Date: 20251021
  Serious: Yes (Hospitalization)
  Sender: MYLAN
  Company Number: None

PATIENT
  Age: 70 Year
  Sex: Male
  Weight: 70 kg

DRUGS (8)
  1. VALACYCLOVIR HYDROCHLORIDE [Suspect]
     Active Substance: VALACYCLOVIR HYDROCHLORIDE
     Indication: Antiviral prophylaxis
     Dosage: 500 MILLIGRAM, BID, 500MG X TWICE A DAY??
     Dates: start: 20250224, end: 20250301
  2. VALACYCLOVIR HYDROCHLORIDE [Suspect]
     Active Substance: VALACYCLOVIR HYDROCHLORIDE
     Dosage: 500 MILLIGRAM, BID, 500MG X TWICE A DAY??
     Route: 048
     Dates: start: 20250224, end: 20250301
  3. VALACYCLOVIR HYDROCHLORIDE [Suspect]
     Active Substance: VALACYCLOVIR HYDROCHLORIDE
     Dosage: 500 MILLIGRAM, BID, 500MG X TWICE A DAY??
     Route: 048
     Dates: start: 20250224, end: 20250301
  4. VALACYCLOVIR HYDROCHLORIDE [Suspect]
     Active Substance: VALACYCLOVIR HYDROCHLORIDE
     Dosage: 500 MILLIGRAM, BID, 500MG X TWICE A DAY??
     Dates: start: 20250224, end: 20250301
  5. PROCARBAZINE HYDROCHLORIDE [Suspect]
     Active Substance: PROCARBAZINE HYDROCHLORIDE
     Indication: Central nervous system lymphoma
     Dosage: 200 MILLIGRAM, QD, D2 TO D8 OF THE CHEMOTHERAPY
     Dates: start: 20250225, end: 20250301
  6. PROCARBAZINE HYDROCHLORIDE [Suspect]
     Active Substance: PROCARBAZINE HYDROCHLORIDE
     Dosage: 200 MILLIGRAM, QD, D2 TO D8 OF THE CHEMOTHERAPY
     Route: 048
     Dates: start: 20250225, end: 20250301
  7. PROCARBAZINE HYDROCHLORIDE [Suspect]
     Active Substance: PROCARBAZINE HYDROCHLORIDE
     Dosage: 200 MILLIGRAM, QD, D2 TO D8 OF THE CHEMOTHERAPY
     Route: 048
     Dates: start: 20250225, end: 20250301
  8. PROCARBAZINE HYDROCHLORIDE [Suspect]
     Active Substance: PROCARBAZINE HYDROCHLORIDE
     Dosage: 200 MILLIGRAM, QD, D2 TO D8 OF THE CHEMOTHERAPY
     Dates: start: 20250225, end: 20250301

REACTIONS (1)
  - Hepatocellular injury [Recovered/Resolved]

NARRATIVE: CASE EVENT DATE: 20250227
